FAERS Safety Report 7593306-9 (Version None)
Quarter: 2011Q3

REPORT INFORMATION
  Report Type: 
  Country: None (occurrence: None)
  Receive Date: 20110706
  Receipt Date: 20110623
  Transmission Date: 20111222
  Serious: Yes (Other)
  Sender: FDA-Public Use
  Company Number: US-TYCO HEALTHCARE/MALLINCKRODT-T201101309

PATIENT
  Age: 66 Year
  Sex: Female
  Weight: 67.574 kg

DRUGS (17)
  1. PREMARIN [Concomitant]
     Indication: OSTEOPOROSIS
     Dosage: 0.3 MG
  2. OMEPRAZOLE [Concomitant]
     Indication: PEPTIC ULCER
     Dosage: 20 MG
  3. ATENOLOL [Concomitant]
     Dosage: 25 MG, TOOK ONCE OR TWICE
     Dates: start: 20050701
  4. PROPOXYPHENE NAPSYLATE W/ ACETAMINOPHEN [Suspect]
     Dosage: UNK
     Dates: start: 20070803, end: 20101124
  5. OMEPRAZOLE [Concomitant]
     Indication: GASTROOESOPHAGEAL REFLUX DISEASE
  6. NEXIUM [Concomitant]
     Indication: GASTROOESOPHAGEAL REFLUX DISEASE
  7. NEXIUM [Concomitant]
     Indication: PEPTIC ULCER
     Dosage: 40 MG
  8. HYDROCODONE BITARTRATE AND ACETAMINOPHEN [Concomitant]
     Dosage: 5/500 MG, UNK
     Dates: start: 20050311
  9. ATENOLOL [Concomitant]
     Indication: PALPITATIONS
     Dosage: 25 MG, UNK
     Dates: end: 20050301
  10. DARVOCET-N 50 [Suspect]
     Dosage: UNK
  11. ATENOLOL [Concomitant]
     Dosage: 25 MG, UNK
     Dates: start: 20081027
  12. AMOXICILLIN [Concomitant]
     Dosage: 500 MG
     Dates: start: 20050311
  13. PROPOXYPHENE HCL AND ACETAMINOPHEN [Suspect]
     Indication: PAIN
     Dosage: 1-2 TABS EVERY SIX HOURS PRN
     Dates: start: 20040402, end: 20070803
  14. ACTONEL [Concomitant]
     Indication: OSTEOPOROSIS
     Dosage: 30 MG
  15. PENICILLIN VK                      /00001802/ [Concomitant]
     Dosage: 250 MG
     Dates: start: 20051006
  16. CALCIUM WITH VITAMIN D             /00944201/ [Concomitant]
     Indication: OSTEOPOROSIS
  17. PENICILLIN VK                      /00001802/ [Concomitant]
     Dosage: 250 MG
     Dates: start: 20060622

REACTIONS (19)
  - TONSILLITIS [None]
  - VIRAL PHARYNGITIS [None]
  - PALPITATIONS [None]
  - PAIN [None]
  - GINGIVITIS [None]
  - OEDEMA PERIPHERAL [None]
  - GASTROOESOPHAGEAL REFLUX DISEASE [None]
  - APHTHOUS STOMATITIS [None]
  - BACK PAIN [None]
  - CHRONIC OBSTRUCTIVE PULMONARY DISEASE [None]
  - MUSCULOSKELETAL CHEST PAIN [None]
  - ROAD TRAFFIC ACCIDENT [None]
  - NEUROPATHY PERIPHERAL [None]
  - TOOTH ABSCESS [None]
  - PARAESTHESIA [None]
  - PEPTIC ULCER [None]
  - FATIGUE [None]
  - ARTHRALGIA [None]
  - AXILLARY MASS [None]
